FAERS Safety Report 5193119-1 (Version None)
Quarter: 2006Q4

REPORT INFORMATION
  Report Type: 
  Country: None (occurrence: None)
  Receive Date: 20061228
  Receipt Date: 20060510
  Transmission Date: 20070319
  Serious: No
  Sender: FDA-Public Use
  Company Number: US-GLAXOSMITHKLINE-A0605087A

PATIENT
  Age: 62 Year
  Sex: Male

DRUGS (8)
  1. AVODART [Suspect]
     Indication: PROSTATE CANCER
     Dosage: .5MG PER DAY
     Route: 048
  2. FLOMAX [Suspect]
     Indication: PROSTATE CANCER
     Dosage: .4MG PER DAY
  3. CASODEX [Concomitant]
  4. LUPRON [Concomitant]
  5. TOPROL-XL [Concomitant]
  6. DOSTINEX [Concomitant]
  7. HYDROCHLOROTHIAZIDE [Concomitant]
  8. MICARDIS [Concomitant]

REACTIONS (1)
  - ORTHOSTATIC HYPOTENSION [None]
